FAERS Safety Report 8185325-9 (Version None)
Quarter: 2012Q1

REPORT INFORMATION
  Report Type: 
  Country: None (occurrence: None)
  Receive Date: 20120305
  Receipt Date: 20120229
  Transmission Date: 20120608
  Serious: Yes (Death, Hospitalization, Other)
  Sender: FDA-Public Use
  Company Number: PHHY2012TW017522

PATIENT
  Age: 36 Year
  Sex: Female

DRUGS (8)
  1. BROMAZEPAM [Suspect]
     Dosage: 60 MG, UNK
  2. LORAZEPAM [Suspect]
     Dosage: 10 MG, UNK
  3. MOCLOBEMIDE [Suspect]
     Dosage: 4500 MG, UNK
  4. ALPRAZOLAM [Suspect]
     Dosage: 15 MG, UNK
  5. FLUOXETINE [Suspect]
     Dosage: 200 MG, UNK
  6. MIDAZOLAM [Suspect]
     Dosage: 75 MG, UNK
  7. ESTAZOLAM [Suspect]
     Dosage: 20 MG, UNK
  8. PROPRANOLOL [Suspect]
     Dosage: 300 MG, UNK

REACTIONS (26)
  - DRUG LEVEL INCREASED [None]
  - CHILLS [None]
  - SINUS TACHYCARDIA [None]
  - MOUTH HAEMORRHAGE [None]
  - CIRCULATORY COLLAPSE [None]
  - THROMBOCYTOPENIA [None]
  - PUPILLARY REFLEX IMPAIRED [None]
  - COMA [None]
  - HYPERHIDROSIS [None]
  - EXTENSOR PLANTAR RESPONSE [None]
  - HYPERTHERMIA [None]
  - MYDRIASIS [None]
  - BLOOD GLUCOSE INCREASED [None]
  - INTENTIONAL OVERDOSE [None]
  - LEUKOCYTOSIS [None]
  - SEROTONIN SYNDROME [None]
  - HYPOTENSION [None]
  - MUSCLE TWITCHING [None]
  - CONVULSION [None]
  - TREMOR [None]
  - HYPERREFLEXIA [None]
  - VENTRICULAR ARRHYTHMIA [None]
  - DISSEMINATED INTRAVASCULAR COAGULATION [None]
  - MUSCLE RIGIDITY [None]
  - ECCHYMOSIS [None]
  - BRADYCARDIA [None]
